FAERS Safety Report 18659804 (Version 1)
Quarter: 2020Q4

REPORT INFORMATION
  Report Type: Spontaneous
  Country: DE (occurrence: DE)
  Receive Date: 20201224
  Receipt Date: 20201224
  Transmission Date: 20210114
  Serious: Yes (Other)
  Sender: FDA-Public Use
  Company Number: DE-009507513-2012DEU009270

PATIENT
  Age: 1 Day
  Sex: Female
  Weight: 2.49 kg

DRUGS (5)
  1. ESCITALOPRAM [Suspect]
     Active Substance: ESCITALOPRAM OXALATE
     Indication: DEPRESSION
     Dosage: 20 MILLIGRAM, QD; 20 [MG/D ]; 0. - 38.3. GESTATIONAL WEEK
     Route: 064
     Dates: start: 20190414, end: 20200108
  2. MIRTAZAPINE. [Suspect]
     Active Substance: MIRTAZAPINE
     Indication: SLEEP DISORDER
     Dosage: 30 MILLIGRAM, QD; 30 [MG/D ] (0. - 38.3. GESTATIONAL WEEK)
     Route: 064
     Dates: start: 20190414, end: 20200108
  3. FOLIC ACID. [Concomitant]
     Active Substance: FOLIC ACID
     Indication: PROPHYLAXIS OF NEURAL TUBE DEFECT
     Dosage: UNK; 6.3. - 9.3. GESTATIONAL WEEK
     Route: 064
     Dates: start: 20190529, end: 20190619
  4. SUBSTITOL (MORPHINE SULFATE) [Suspect]
     Active Substance: MORPHINE SULFATE
     Indication: DRUG DEPENDENCE
     Dosage: 400 MILLIGRAM, QD; 400 [MG/D ]; SUBSTITOL RET.; 0. - 38.3. GESTATIONAL WEEK
     Route: 064
     Dates: start: 20190414, end: 20200108
  5. CETIRIZINE HYDROCHLORIDE. [Concomitant]
     Active Substance: CETIRIZINE HYDROCHLORIDE
     Indication: SEASONAL ALLERGY
     Dosage: UNK, PRN; IF REQUIRED; 0. - 9.3. GESTATIONAL WEEK
     Route: 064
     Dates: start: 20190414, end: 20190619

REACTIONS (4)
  - Foetal exposure during pregnancy [Unknown]
  - Respiratory disorder neonatal [Recovered/Resolved]
  - Drug withdrawal syndrome neonatal [Recovered/Resolved]
  - Small for dates baby [Recovered/Resolved]

NARRATIVE: CASE EVENT DATE: 20200108
